FAERS Safety Report 13640306 (Version 12)
Quarter: 2020Q4

REPORT INFORMATION
  Report Type: Report from Study
  Country: None (occurrence: US)
  Receive Date: 20170610
  Receipt Date: 20201017
  Transmission Date: 20210113
  Serious: Yes (Other)
  Sender: FDA-Public Use
  Company Number: US-ABBVIE-17K-163-1875025-00

PATIENT
  Age: 60 Year
  Sex: Female
  Weight: 81.27 kg

DRUGS (9)
  1. HUMIRA [Suspect]
     Active Substance: ADALIMUMAB
     Route: 058
  2. HUMIRA [Suspect]
     Active Substance: ADALIMUMAB
     Route: 058
  3. HUMIRA [Suspect]
     Active Substance: ADALIMUMAB
     Route: 058
  4. HUMIRA [Suspect]
     Active Substance: ADALIMUMAB
     Route: 058
  5. HUMIRA [Suspect]
     Active Substance: ADALIMUMAB
     Route: 058
  6. HUMIRA [Suspect]
     Active Substance: ADALIMUMAB
     Indication: RHEUMATOID ARTHRITIS
     Route: 058
     Dates: start: 2015, end: 2017
  7. HUMIRA [Suspect]
     Active Substance: ADALIMUMAB
     Route: 058
  8. GABAPENTIN. [Suspect]
     Active Substance: GABAPENTIN
     Indication: PRODUCT USED FOR UNKNOWN INDICATION
     Route: 065
     Dates: start: 2017, end: 2017
  9. HUMIRA [Suspect]
     Active Substance: ADALIMUMAB
     Route: 058

REACTIONS (35)
  - Muscular weakness [Not Recovered/Not Resolved]
  - Fatigue [Recovering/Resolving]
  - Arthritis infective [Recovered/Resolved]
  - Muscular weakness [Not Recovered/Not Resolved]
  - Arthralgia [Recovered/Resolved]
  - Thrombosis [Recovering/Resolving]
  - Somnolence [Recovering/Resolving]
  - Joint swelling [Not Recovered/Not Resolved]
  - Musculoskeletal stiffness [Not Recovered/Not Resolved]
  - Nerve compression [Not Recovered/Not Resolved]
  - Neuropathy peripheral [Not Recovered/Not Resolved]
  - Spinal pain [Not Recovered/Not Resolved]
  - Fall [Recovering/Resolving]
  - Knee arthroplasty [Recovered/Resolved]
  - Joint swelling [Unknown]
  - Fatigue [Recovering/Resolving]
  - Rheumatoid arthritis [Not Recovered/Not Resolved]
  - Haemorrhage [Recovering/Resolving]
  - Contusion [Recovering/Resolving]
  - Post procedural complication [Not Recovered/Not Resolved]
  - Neuralgia [Not Recovered/Not Resolved]
  - Arthralgia [Not Recovered/Not Resolved]
  - Pain in extremity [Recovered/Resolved]
  - Feeling hot [Recovered/Resolved]
  - Post procedural infection [Recovered/Resolved]
  - Asthenia [Recovering/Resolving]
  - Procedural pain [Not Recovered/Not Resolved]
  - Depression postoperative [Recovering/Resolving]
  - Pain [Not Recovered/Not Resolved]
  - Arthralgia [Not Recovered/Not Resolved]
  - Spinal stenosis [Recovering/Resolving]
  - Device breakage [Recovered/Resolved]
  - Nerve injury [Not Recovered/Not Resolved]
  - Joint lock [Recovering/Resolving]
  - Osteoarthritis [Not Recovered/Not Resolved]

NARRATIVE: CASE EVENT DATE: 2016
